FAERS Safety Report 20232663 (Version 1)
Quarter: 2021Q4

REPORT INFORMATION
  Report Type: Spontaneous
  Country: US (occurrence: US)
  Receive Date: 20211227
  Receipt Date: 20211227
  Transmission Date: 20220303
  Serious: No
  Sender: FDA-Public Use
  Company Number: US-TAKEDA-2021TUS081173

PATIENT
  Sex: Male

DRUGS (2)
  1. NINLARO [Suspect]
     Active Substance: IXAZOMIB CITRATE
     Indication: Amyloidosis
     Dosage: 4 MILLIGRAM
     Route: 048
     Dates: start: 20201014
  2. DARZALEX [Concomitant]
     Active Substance: DARATUMUMAB
     Dosage: 400 MILLIGRAM
     Route: 065

REACTIONS (1)
  - Gastrointestinal disorder [Unknown]
